FAERS Safety Report 5101520-7 (Version None)
Quarter: 2006Q3

REPORT INFORMATION
  Report Type: 
  Country: None (occurrence: None)
  Receive Date: 20060911
  Receipt Date: 20060831
  Transmission Date: 20061208
  Serious: Yes (Hospitalization)
  Sender: FDA-Public Use
  Company Number: US-JNJFOC-20060400239

PATIENT
  Sex: Female
  Weight: 60.78 kg

DRUGS (11)
  1. DURAGESIC-100 [Suspect]
     Dosage: 100 AND 25 UG PATCH APPLIED.
     Route: 062
  2. DURAGESIC-100 [Suspect]
     Indication: PAIN
     Route: 062
  3. FLEXERIL [Concomitant]
     Indication: MUSCLE SPASMS
     Route: 048
  4. EFFEXOR [Concomitant]
     Route: 048
  5. EFFEXOR [Concomitant]
     Indication: DEPRESSION
     Route: 048
  6. WELLBUTRIN SR [Concomitant]
     Indication: DEPRESSION
     Dosage: SIX HOURS APART
     Route: 048
  7. SEROQUEL [Concomitant]
     Indication: SLEEP DISORDER
     Dosage: 1/4 OF A 100 MG TABLET
     Route: 048
  8. AMBIEN [Concomitant]
     Indication: SLEEP DISORDER
     Dosage: AT BEDTIME
     Route: 048
  9. NEXIUM [Concomitant]
     Indication: GASTROOESOPHAGEAL REFLUX DISEASE
     Route: 048
  10. DIAZEPAM [Concomitant]
     Indication: NERVOUSNESS
     Route: 048
  11. LUNESTA [Concomitant]
     Indication: SLEEP DISORDER
     Route: 048

REACTIONS (6)
  - ABDOMINAL HAEMATOMA [None]
  - DRUG WITHDRAWAL SYNDROME [None]
  - ENDOMETRIOSIS [None]
  - INCISION SITE HAEMORRHAGE [None]
  - PAIN [None]
  - THERAPEUTIC RESPONSE DECREASED [None]
